FAERS Safety Report 6300520-9 (Version None)
Quarter: 2009Q3

REPORT INFORMATION
  Report Type: 
  Country: None (occurrence: None)
  Receive Date: 20090806
  Receipt Date: 20090105
  Transmission Date: 20100115
  Serious: No
  Sender: FDA-Public Use
  Company Number: US-ABBOTT-09P-163-0495988-00

PATIENT
  Sex: Female
  Weight: 118.04 kg

DRUGS (11)
  1. DEPAKOTE ER [Suspect]
     Indication: CONVULSION
     Dates: end: 20050101
  2. KEPPRA [Concomitant]
     Indication: CONVULSION
     Dates: start: 20070101
  3. KLONOPIN [Concomitant]
     Indication: DRUG USE FOR UNKNOWN INDICATION
     Dosage: 3 TAB AND 1 HALF TABLETS/DAY
  4. PHENOBARBITAL [Concomitant]
     Indication: DRUG USE FOR UNKNOWN INDICATION
  5. FOSAMAX [Concomitant]
     Indication: DRUG USE FOR UNKNOWN INDICATION
  6. MELOXICAM [Concomitant]
     Indication: DRUG USE FOR UNKNOWN INDICATION
  7. LEVOTHYROXINE [Concomitant]
     Indication: DRUG USE FOR UNKNOWN INDICATION
  8. KLOR-CON [Concomitant]
     Indication: DRUG USE FOR UNKNOWN INDICATION
  9. CRESTOR [Concomitant]
     Indication: BLOOD CHOLESTEROL INCREASED
  10. TRIAMTERINE [Concomitant]
     Indication: DRUG USE FOR UNKNOWN INDICATION
  11. DIVALPROEX SODIUM ER GENERIC [Concomitant]
     Indication: DRUG USE FOR UNKNOWN INDICATION
     Dosage: MANUFACTORED BY TEVA
     Dates: start: 20050101

REACTIONS (1)
  - WEIGHT INCREASED [None]
